FAERS Safety Report 6055906-7 (Version None)
Quarter: 2009Q1

REPORT INFORMATION
  Report Type: 
  Country: None (occurrence: None)
  Receive Date: 20090128
  Receipt Date: 20090119
  Transmission Date: 20090719
  Serious: Yes (Other)
  Sender: FDA-Public Use
  Company Number: PHHY2009CA02131

PATIENT
  Sex: Female

DRUGS (2)
  1. DIOVAN [Suspect]
     Dosage: 1 TABLET DAILY
     Route: 048
  2. DIOVAN [Suspect]
     Dosage: 1/2 TABLET DAILY
     Route: 048
     Dates: start: 20081115

REACTIONS (4)
  - ANOREXIA [None]
  - DEPRESSION [None]
  - HEART RATE INCREASED [None]
  - PALPITATIONS [None]
